FAERS Safety Report 4373301-3 (Version None)
Quarter: 2004Q2

REPORT INFORMATION
  Report Type: 
  Country: None (occurrence: None)
  Receive Date: 20040603
  Receipt Date: 20040525
  Transmission Date: 20050107
  Serious: Yes (Other)
  Sender: FDA-Public Use
  Company Number: 2004035299

PATIENT
  Sex: Male
  Weight: 72.5755 kg

DRUGS (3)
  1. LIPITOR [Suspect]
     Indication: BLOOD CHOLESTEROL INCREASED
     Dosage: ORAL
     Route: 048
     Dates: start: 19960501
  2. PHENYTOIN SODIUM [Concomitant]
  3. ALLOPURINOL [Concomitant]

REACTIONS (2)
  - AORTIC ANEURYSM [None]
  - CONDITION AGGRAVATED [None]
